FAERS Safety Report 7058193-6 (Version None)
Quarter: 2010Q4

REPORT INFORMATION
  Report Type: 
  Country: None (occurrence: None)
  Receive Date: 20101022
  Receipt Date: 20101015
  Transmission Date: 20110411
  Serious: Yes (Hospitalization, Disabling)
  Sender: FDA-Public Use
  Company Number: US-US-EMD SERONO, INC.-7022441

PATIENT
  Sex: Female

DRUGS (5)
  1. REBIF [Suspect]
     Indication: MULTIPLE SCLEROSIS
     Route: 058
     Dates: start: 20061109
  2. BACLOFEN [Concomitant]
  3. GABAPENTIN [Concomitant]
  4. VICODIN [Concomitant]
  5. UNSPECIFIED PREMEDICATION [Concomitant]
     Indication: PREMEDICATION

REACTIONS (2)
  - MULTIPLE SCLEROSIS RELAPSE [None]
  - PROGRESSIVE MULTIPLE SCLEROSIS [None]
